FAERS Safety Report 11061189 (Version 1)
Quarter: 2015Q2

REPORT INFORMATION
  Report Type: Spontaneous
  Country: US (occurrence: US)
  Receive Date: 20150424
  Receipt Date: 20150424
  Transmission Date: 20150821
  Serious: Yes (Hospitalization, Other)
  Sender: FDA-Public Use
  Company Number: US-ACCORD-030255

PATIENT
  Sex: Female

DRUGS (2)
  1. MITOMYCIN. [Suspect]
     Active Substance: MITOMYCIN
     Indication: NEOPLASM MALIGNANT
     Dosage: 8 HALF DOSES
  2. PREDNISONE. [Concomitant]
     Active Substance: PREDNISONE

REACTIONS (4)
  - Rash [Not Recovered/Not Resolved]
  - Skin reaction [Unknown]
  - Rectal haemorrhage [Unknown]
  - Chronic obstructive pulmonary disease [Unknown]
